APPROVED DRUG PRODUCT: LEUCOVORIN CALCIUM
Active Ingredient: LEUCOVORIN CALCIUM
Strength: EQ 5MG BASE
Dosage Form/Route: TABLET;ORAL
Application: N018459 | Product #001
Applicant: XANODYNE PHARMACEUTICS INC
Approved: Jan 30, 1986 | RLD: No | RS: No | Type: DISCN